FAERS Safety Report 10145557 (Version 2)
Quarter: 2014Q2

REPORT INFORMATION
  Report Type: Report from Study
  Country: ES (occurrence: ES)
  Receive Date: 20140501
  Receipt Date: 20140501
  Transmission Date: 20141212
  Serious: Yes (Death)
  Sender: FDA-Public Use
  Company Number: ES-ROCHE-1388139

PATIENT
  Age: 62 Year
  Sex: Female
  Weight: 57.3 kg

DRUGS (9)
  1. BEVACIZUMAB [Suspect]
     Indication: COLORECTAL CANCER METASTATIC
     Route: 042
     Dates: start: 20140403, end: 20140403
  2. 5-FLUOROURACIL [Suspect]
     Indication: COLORECTAL CANCER METASTATIC
     Route: 042
     Dates: start: 20140403, end: 20140405
  3. OXALIPLATIN [Suspect]
     Indication: COLORECTAL CANCER METASTATIC
     Route: 042
     Dates: start: 20140403, end: 20140403
  4. SERETIDE [Concomitant]
     Indication: ASTHMA
     Route: 048
     Dates: start: 20140131, end: 20140405
  5. TIAMAZOL [Concomitant]
     Indication: HYPERTHYROIDISM
     Route: 048
     Dates: start: 20140207, end: 20140405
  6. OMEPRAZOLE [Concomitant]
     Indication: PROPHYLAXIS
     Route: 048
     Dates: start: 20140218, end: 20140405
  7. PARACETAMOL [Concomitant]
     Indication: PAIN
     Route: 048
     Dates: start: 20140310, end: 20140405
  8. METAMIZOLE [Concomitant]
     Indication: PAIN
     Route: 048
     Dates: start: 20140310, end: 20140405
  9. PRIMPERAN [Concomitant]
     Indication: NAUSEA
     Route: 048
     Dates: start: 20140327, end: 20140405

REACTIONS (1)
  - Dyspnoea [Fatal]
